FAERS Safety Report 16770900 (Version 1)
Quarter: 2019Q3

REPORT INFORMATION
  Report Type: Spontaneous
  Country: TN (occurrence: TN)
  Receive Date: 20190904
  Receipt Date: 20190904
  Transmission Date: 20191005
  Serious: Yes (Hospitalization, Other)
  Sender: FDA-Public Use
  Company Number: TN-AKORN PHARMACEUTICALS-2019AKN01830

PATIENT
  Age: 28 Year
  Sex: Female

DRUGS (4)
  1. PYRAZINAMIDE. [Suspect]
     Active Substance: PYRAZINAMIDE
     Indication: TUBERCULOUS PLEURISY
     Route: 065
  2. ISONIAZID. [Concomitant]
     Active Substance: ISONIAZID
     Indication: TUBERCULOUS PLEURISY
     Route: 065
  3. ETHAMBUTOL [Suspect]
     Active Substance: ETHAMBUTOL HYDROCHLORIDE
     Indication: TUBERCULOUS PLEURISY
     Dosage: UNK
     Route: 065
  4. RIFAMPIN. [Concomitant]
     Active Substance: RIFAMPIN
     Indication: TUBERCULOUS PLEURISY
     Route: 065

REACTIONS (5)
  - Tubulointerstitial nephritis [Unknown]
  - Hepatocellular injury [Recovering/Resolving]
  - Chronic kidney disease [Unknown]
  - Renal tubular necrosis [Unknown]
  - Drug reaction with eosinophilia and systemic symptoms [Recovering/Resolving]
